FAERS Safety Report 11640513 (Version 1)
Quarter: 2015Q4

REPORT INFORMATION
  Report Type: Spontaneous
  Country: US (occurrence: None)
  Receive Date: 20151016
  Receipt Date: 20151016
  Transmission Date: 20160304
  Serious: Yes (Disabling)
  Sender: FDA-Public Use
  Company Number: None

PATIENT
  Age: 72 Year
  Sex: Female
  Weight: 77.11 kg

DRUGS (2)
  1. METFORMIN [Suspect]
     Active Substance: METFORMIN HYDROCHLORIDE
     Indication: DIABETES MELLITUS
     Dosage: 1 PILL
     Route: 048
  2. BENZTROPINE MES [Suspect]
     Active Substance: BENZTROPINE MESYLATE
     Indication: DYSKINESIA
     Dosage: 1 PILL
     Route: 048

REACTIONS (7)
  - Disturbance in attention [None]
  - Balance disorder [None]
  - Depression [None]
  - Executive dysfunction [None]
  - Confusional state [None]
  - Night blindness [None]
  - Mental disorder [None]

NARRATIVE: CASE EVENT DATE: 20150301
